FAERS Safety Report 7271748-9 (Version None)
Quarter: 2011Q1

REPORT INFORMATION
  Report Type: 
  Country: None (occurrence: None)
  Receive Date: 20110203
  Receipt Date: 20110126
  Transmission Date: 20110831
  Serious: Yes (Other)
  Sender: FDA-Public Use
  Company Number: ES-ASTELLAS-2011US000429

PATIENT

DRUGS (3)
  1. CASPOFUNGIN [Concomitant]
     Indication: ASPERGILLOSIS
     Dosage: UNK
     Route: 065
     Dates: start: 20110117
  2. AMBISOME [Suspect]
     Indication: ASPERGILLOSIS
     Dosage: 5 MG, UNKNOWN/D
     Route: 042
     Dates: start: 20110117, end: 20110125
  3. AMBISOME [Suspect]
     Dosage: 3 MG, UNKNOWN/D
     Route: 042
     Dates: start: 20110126

REACTIONS (1)
  - RENAL TUBULAR DISORDER [None]
